FAERS Safety Report 4872568-2 (Version None)
Quarter: 2006Q1

REPORT INFORMATION
  Report Type: 
  Country: None (occurrence: None)
  Receive Date: 20060105
  Receipt Date: 20051228
  Transmission Date: 20060701
  Serious: Yes (Life-Threatening, Hospitalization)
  Sender: FDA-Public Use
  Company Number: DE-BOEHRINGER INGELHEIM PHARMACEUTICALS, INC.-2005-DE-05666DE

PATIENT
  Sex: Female
  Weight: 57 kg

DRUGS (7)
  1. AGGRENOX [Suspect]
     Indication: TRANSIENT ISCHAEMIC ATTACK
     Route: 048
     Dates: start: 20051020, end: 20051107
  2. PANTOZOL [Concomitant]
  3. DELIX PLUS [Concomitant]
  4. APONAL [Concomitant]
  5. ZOCOR [Concomitant]
  6. ALLOPURINOL [Concomitant]
  7. CONCOR [Concomitant]

REACTIONS (3)
  - CHEST PAIN [None]
  - INTRACARDIAC THROMBUS [None]
  - MYOCARDIAL INFARCTION [None]
